FAERS Safety Report 20078520 (Version 9)
Quarter: 2022Q3

REPORT INFORMATION
  Report Type: Spontaneous
  Country: US (occurrence: US)
  Receive Date: 20211117
  Receipt Date: 20220927
  Transmission Date: 20221026
  Serious: No
  Sender: FDA-Public Use
  Company Number: US-NOVARTISTESTPH-NVSC2021US262259

PATIENT
  Age: 55 Year
  Sex: Female

DRUGS (4)
  1. KESIMPTA [Suspect]
     Active Substance: OFATUMUMAB
     Indication: Relapsing multiple sclerosis
     Dosage: 20 MG, QMO (BENEATH THE SKIN, USUALLY VIA INJECTION)
     Route: 058
     Dates: start: 20210906
  2. KESIMPTA [Suspect]
     Active Substance: OFATUMUMAB
     Indication: Relapsing-remitting multiple sclerosis
     Dosage: 20 MG, QMO (BENEATH THE SKIN, USUALLY VIA INJECTION)
     Route: 058
     Dates: start: 20211115
  3. KESIMPTA [Suspect]
     Active Substance: OFATUMUMAB
     Indication: Secondary progressive multiple sclerosis
  4. KESIMPTA [Suspect]
     Active Substance: OFATUMUMAB
     Indication: Clinically isolated syndrome

REACTIONS (25)
  - Muscle spasms [Unknown]
  - Restless legs syndrome [Unknown]
  - Influenza like illness [Recovered/Resolved]
  - Abdominal discomfort [Unknown]
  - Confusional state [Unknown]
  - Hair colour changes [Unknown]
  - Alopecia [Unknown]
  - Hair growth abnormal [Unknown]
  - Onychoclasis [Unknown]
  - Skin wrinkling [Unknown]
  - Bone deformity [Unknown]
  - Post-traumatic stress disorder [Unknown]
  - Weight decreased [Unknown]
  - Headache [Recovered/Resolved]
  - Memory impairment [Unknown]
  - Reading disorder [Unknown]
  - Hypoaesthesia [Unknown]
  - Arthritis [Unknown]
  - Pain in extremity [Unknown]
  - Gait disturbance [Unknown]
  - Pain [Unknown]
  - COVID-19 [Unknown]
  - Migraine [Unknown]
  - Intervertebral disc degeneration [Unknown]
  - Stenosis [Unknown]

NARRATIVE: CASE EVENT DATE: 20210909
